FAERS Safety Report 9300132 (Version 1)
Quarter: 2013Q2

REPORT INFORMATION
  Report Type: Spontaneous
  Country: US (occurrence: US)
  Receive Date: 20130517
  Receipt Date: 20130517
  Transmission Date: 20140414
  Serious: No
  Sender: FDA-Public Use
  Company Number: US-009507513-1305USA010378

PATIENT
  Sex: Female

DRUGS (7)
  1. REMERON [Suspect]
     Dosage: UNK
  2. CARBIDOPA (+) LEVODOPA [Concomitant]
  3. PROZAC [Concomitant]
  4. OXYCONTIN [Concomitant]
  5. DEPAKOTE [Concomitant]
  6. XANAX [Concomitant]
  7. LYRICA [Concomitant]

REACTIONS (5)
  - Parkinson^s disease [Unknown]
  - Neuropathy peripheral [Unknown]
  - Spinal disorder [Unknown]
  - Local swelling [Unknown]
  - Oedema [Unknown]
